FAERS Safety Report 24327250 (Version 1)
Quarter: 2024Q3

REPORT INFORMATION
  Report Type: Spontaneous
  Country: US (occurrence: US)
  Receive Date: 20240917
  Receipt Date: 20240917
  Transmission Date: 20241017
  Serious: No
  Sender: ELI LILLY AND CO
  Company Number: US-ELI_LILLY_AND_COMPANY-US202409006242

PATIENT
  Age: 59 Year
  Sex: Female

DRUGS (15)
  1. MOUNJARO [Suspect]
     Active Substance: TIRZEPATIDE
     Indication: Blood cholesterol increased
     Dosage: UNK UNK, WEEKLY (1/W)
     Route: 065
     Dates: start: 2023
  2. MOUNJARO [Suspect]
     Active Substance: TIRZEPATIDE
     Indication: Weight control
  3. MOUNJARO [Suspect]
     Active Substance: TIRZEPATIDE
     Indication: Behaviour disorder
  4. MOUNJARO [Suspect]
     Active Substance: TIRZEPATIDE
     Indication: Blood cholesterol increased
     Dosage: 12.5 MG, WEEKLY (1/W)
     Route: 065
     Dates: start: 202408
  5. MOUNJARO [Suspect]
     Active Substance: TIRZEPATIDE
     Indication: Blood cholesterol increased
     Dosage: 12.5 MG, WEEKLY (1/W)
     Route: 065
     Dates: start: 202408
  6. MOUNJARO [Suspect]
     Active Substance: TIRZEPATIDE
     Indication: Blood cholesterol increased
     Dosage: 12.5 MG, WEEKLY (1/W)
     Route: 065
     Dates: start: 202408
  7. MOUNJARO [Suspect]
     Active Substance: TIRZEPATIDE
     Indication: Blood cholesterol increased
     Dosage: 12.5 MG, WEEKLY (1/W)
     Route: 065
     Dates: start: 202408
  8. MOUNJARO [Suspect]
     Active Substance: TIRZEPATIDE
     Indication: Weight control
  9. MOUNJARO [Suspect]
     Active Substance: TIRZEPATIDE
     Indication: Weight control
  10. MOUNJARO [Suspect]
     Active Substance: TIRZEPATIDE
     Indication: Weight control
  11. MOUNJARO [Suspect]
     Active Substance: TIRZEPATIDE
     Indication: Weight control
  12. MOUNJARO [Suspect]
     Active Substance: TIRZEPATIDE
     Indication: Behaviour disorder
  13. MOUNJARO [Suspect]
     Active Substance: TIRZEPATIDE
     Indication: Behaviour disorder
  14. MOUNJARO [Suspect]
     Active Substance: TIRZEPATIDE
     Indication: Behaviour disorder
  15. MOUNJARO [Suspect]
     Active Substance: TIRZEPATIDE
     Indication: Behaviour disorder

REACTIONS (12)
  - Chest discomfort [Recovering/Resolving]
  - Insomnia [Recovering/Resolving]
  - Dyspnoea [Recovering/Resolving]
  - Hypopnoea [Recovering/Resolving]
  - Muscle tightness [Recovering/Resolving]
  - Throat tightness [Recovering/Resolving]
  - Mental status changes [Recovering/Resolving]
  - Off label use [Unknown]
  - Decreased appetite [Recovering/Resolving]
  - Malaise [Recovering/Resolving]
  - Nausea [Unknown]
  - Vomiting [Not Recovered/Not Resolved]

NARRATIVE: CASE EVENT DATE: 20230101
